FAERS Safety Report 4593012-9 (Version None)
Quarter: 2005Q1

REPORT INFORMATION
  Report Type: 
  Country: None (occurrence: None)
  Receive Date: 20050125
  Receipt Date: 20040823
  Transmission Date: 20050727
  Serious: No
  Sender: FDA-Public Use
  Company Number: USA040876142

PATIENT
  Age: 69 Year
  Sex: Female
  Weight: 62 kg

DRUGS (2)
  1. FORTEO [Suspect]
     Indication: OSTEOPOROSIS
     Dosage: 20 UG/1 DAY
     Dates: start: 20040201, end: 20040813
  2. DYAZIDE [Concomitant]

REACTIONS (2)
  - BLOOD CALCIUM INCREASED [None]
  - BLOOD POTASSIUM DECREASED [None]
